FAERS Safety Report 13543204 (Version 2)
Quarter: 2017Q2

REPORT INFORMATION
  Report Type: Spontaneous
  Country: US (occurrence: US)
  Receive Date: 20170514
  Receipt Date: 20170523
  Transmission Date: 20170830
  Serious: Yes (Other)
  Sender: FDA-Public Use
  Company Number: US-CELGENEUS-USA-20170504091

PATIENT
  Sex: Female

DRUGS (1)
  1. REVLIMID [Suspect]
     Active Substance: LENALIDOMIDE
     Indication: NEURODERMATITIS
     Dosage: 5 MILLIGRAM
     Route: 048
     Dates: start: 201504

REACTIONS (3)
  - Drug dose omission [Unknown]
  - Vomiting [Unknown]
  - Viral upper respiratory tract infection [Unknown]
